FAERS Safety Report 15944019 (Version 1)
Quarter: 2019Q1

REPORT INFORMATION
  Report Type: Spontaneous
  Country: GR (occurrence: GR)
  Receive Date: 20190211
  Receipt Date: 20190211
  Transmission Date: 20190417
  Serious: Yes (Other)
  Sender: FDA-Public Use
  Company Number: GR-ROCHE-2261079

PATIENT
  Age: 34 Year
  Sex: Male

DRUGS (8)
  1. MABTHERA [Suspect]
     Active Substance: RITUXIMAB
     Indication: AUTOIMMUNE HAEMOLYTIC ANAEMIA
     Dosage: DATE OF MOST RECENT DOSE: 08/OCT/2018
     Route: 042
     Dates: start: 20180917
  2. CERTICAN [Concomitant]
     Active Substance: EVEROLIMUS
     Route: 065
  3. BACTRIMEL [Concomitant]
     Active Substance: SULFAMETHOXAZOLE\TRIMETHOPRIM
     Route: 065
  4. ATACAND [Concomitant]
     Active Substance: CANDESARTAN CILEXETIL
     Route: 065
  5. PROGRAF [Concomitant]
     Active Substance: TACROLIMUS\TACROLIMUS ANHYDROUS
     Route: 065
  6. SALOSPIR [Concomitant]
     Active Substance: ASPIRIN
     Route: 065
  7. PREZOLON [Concomitant]
     Active Substance: PREDNISOLONE
     Route: 065
  8. FILICINE [Concomitant]
     Route: 065

REACTIONS (1)
  - Drug-induced liver injury [Not Recovered/Not Resolved]

NARRATIVE: CASE EVENT DATE: 20180918
